FAERS Safety Report 8495528-1 (Version None)
Quarter: 2012Q3

REPORT INFORMATION
  Report Type: 
  Country: None (occurrence: None)
  Receive Date: 20120709
  Receipt Date: 20120706
  Transmission Date: 20120928
  Serious: Yes (Other)
  Sender: FDA-Public Use
  Company Number: US-PFIZER INC-2012162635

PATIENT
  Sex: Female
  Weight: 56.69 kg

DRUGS (1)
  1. DAYPRO [Suspect]
     Indication: OSTEOARTHRITIS
     Dosage: 600 MG, 2X/DAY
     Route: 048
     Dates: start: 20070205

REACTIONS (3)
  - ENDOMETRIOSIS [None]
  - HOT FLUSH [None]
  - RESTLESS LEGS SYNDROME [None]
